FAERS Safety Report 24806819 (Version 1)
Quarter: 2025Q1

REPORT INFORMATION
  Report Type: Spontaneous
  Country: PT (occurrence: PT)
  Receive Date: 20250104
  Receipt Date: 20250104
  Transmission Date: 20250409
  Serious: Yes (Hospitalization, Other)
  Sender: AUROBINDO
  Company Number: PT-PFM-2024-06913

PATIENT
  Age: 53 Year
  Sex: Male

DRUGS (2)
  1. VINORELBINE [Suspect]
     Active Substance: VINORELBINE TARTRATE
     Indication: Squamous cell carcinoma of lung
     Route: 065
  2. CARBOPLATIN [Suspect]
     Active Substance: CARBOPLATIN
     Indication: Squamous cell carcinoma of lung
     Route: 065

REACTIONS (6)
  - Pneumonia [Unknown]
  - Cutaneous vasculitis [Unknown]
  - Neutropenia [Unknown]
  - Leukopenia [Unknown]
  - C-reactive protein increased [Unknown]
  - Anaemia [Unknown]
